FAERS Safety Report 4761107-2 (Version None)
Quarter: 2005Q3

REPORT INFORMATION
  Report Type: 
  Country: None (occurrence: None)
  Receive Date: 20050901
  Receipt Date: 20050901
  Transmission Date: 20060218
  Serious: Yes (Hospitalization, Other)
  Sender: FDA-Public Use
  Company Number: None

PATIENT
  Sex: Female
  Weight: 61.59 kg

DRUGS (4)
  1. DOXORUBICIN [Suspect]
     Indication: URETERIC CANCER
     Dosage: SEE IMAGE
     Route: 042
     Dates: start: 20050706
  2. GEMCITABINE [Suspect]
     Dosage: SEE IMAGE
     Route: 042
     Dates: start: 20050706
  3. PACLITAXEL [Suspect]
     Dosage: SEE IMAGE
     Route: 042
     Dates: start: 20050706, end: 20050726
  4. CISPLATIN [Suspect]
     Dosage: SEE IMAGE
     Route: 042
     Dates: start: 20050706, end: 20050726

REACTIONS (2)
  - DEEP VEIN THROMBOSIS [None]
  - PULMONARY EMBOLISM [None]
